FAERS Safety Report 5201481-6 (Version None)
Quarter: 2007Q1

REPORT INFORMATION
  Report Type: 
  Country: None (occurrence: None)
  Receive Date: 20070104
  Receipt Date: 20061219
  Transmission Date: 20070707
  Serious: Yes (Other)
  Sender: FDA-Public Use
  Company Number: DSA_61269_2006

PATIENT
  Age: 15 Year
  Sex: Male
  Weight: 31.7518 kg

DRUGS (7)
  1. DIASTAT [Suspect]
     Indication: CONVULSION
     Dosage: 10 MG PRN RC
     Route: 054
     Dates: start: 20061018
  2. TEGRETOL [Concomitant]
  3. DULCOLAX [Concomitant]
  4. ALBUTEROL [Concomitant]
  5. PULMICORT [Concomitant]
  6. AMOXICILLIN [Concomitant]
  7. ZYRTEC [Concomitant]

REACTIONS (8)
  - CONDITION AGGRAVATED [None]
  - CONSTIPATION [None]
  - CONVULSION [None]
  - DRUG DISPENSING ERROR [None]
  - INCORRECT DOSE ADMINISTERED [None]
  - MEDICAL DEVICE COMPLICATION [None]
  - NO THERAPEUTIC RESPONSE [None]
  - PHARMACEUTICAL PRODUCT COMPLAINT [None]
